FAERS Safety Report 14958560 (Version 2)
Quarter: 2018Q2

REPORT INFORMATION
  Report Type: Spontaneous
  Country: IT (occurrence: IT)
  Receive Date: 20180531
  Receipt Date: 20180621
  Transmission Date: 20180711
  Serious: Yes (Hospitalization, Other)
  Sender: FDA-Public Use
  Company Number: IT-AUROBINDO-AUR-APL-2018-028409

PATIENT
  Age: 65 Year
  Sex: Male

DRUGS (31)
  1. AMLODIPINE [Interacting]
     Active Substance: AMLODIPINE BESYLATE
     Dosage: ()
  2. LOSARTAN. [Interacting]
     Active Substance: LOSARTAN
     Indication: PRODUCT USED FOR UNKNOWN INDICATION
     Dosage: ()
     Route: 065
  3. LEVETIRACETAM. [Interacting]
     Active Substance: LEVETIRACETAM
     Dosage: UNK ()
  4. METFORMIN [Interacting]
     Active Substance: METFORMIN HYDROCHLORIDE
     Dosage: ()
  5. TAMSULOSIN [Interacting]
     Active Substance: TAMSULOSIN
     Dosage: ()
  6. ATENOLOL. [Interacting]
     Active Substance: ATENOLOL
     Dosage: ()
  7. LISIHEXAL COMP [Interacting]
     Active Substance: HYDROCHLOROTHIAZIDE\LISINOPRIL
     Indication: PRODUCT USED FOR UNKNOWN INDICATION
     Dosage: ()
  8. CARBAMAZEPINE. [Interacting]
     Active Substance: CARBAMAZEPINE
     Dosage: UNK ()
  9. INSULIN [Interacting]
     Active Substance: INSULIN NOS
     Indication: PRODUCT USED FOR UNKNOWN INDICATION
     Dosage: ()
  10. METFORMIN [Interacting]
     Active Substance: METFORMIN HYDROCHLORIDE
     Dosage: UNK ()
  11. TAMSULOSIN [Interacting]
     Active Substance: TAMSULOSIN
     Indication: PRODUCT USED FOR UNKNOWN INDICATION
     Dosage: ()
     Route: 065
  12. AMLODIPINE [Suspect]
     Active Substance: AMLODIPINE BESYLATE
     Indication: PRODUCT USED FOR UNKNOWN INDICATION
     Dosage: ()
     Route: 065
  13. AMLODIPINE [Interacting]
     Active Substance: AMLODIPINE BESYLATE
     Dosage: UNK ()
  14. LEVETIRACETAM. [Interacting]
     Active Substance: LEVETIRACETAM
     Indication: PRODUCT USED FOR UNKNOWN INDICATION
     Dosage: ()
  15. METFORMIN [Interacting]
     Active Substance: METFORMIN HYDROCHLORIDE
     Indication: PRODUCT USED FOR UNKNOWN INDICATION
     Dosage: ()
  16. ATENOLOL. [Interacting]
     Active Substance: ATENOLOL
     Dosage: UNK ()
  17. CARBAMAZEPINE. [Interacting]
     Active Substance: CARBAMAZEPINE
     Indication: EPILEPSY
     Dosage: ()
  18. INSULIN [Interacting]
     Active Substance: INSULIN NOS
     Dosage: ()
     Route: 065
  19. LISIHEXAL COMP [Interacting]
     Active Substance: HYDROCHLOROTHIAZIDE\LISINOPRIL
     Dosage: ()
  20. LEVETIRACETAM. [Interacting]
     Active Substance: LEVETIRACETAM
     Dosage: ()
  21. LOSARTAN. [Interacting]
     Active Substance: LOSARTAN
     Dosage: UNK ()
  22. ROSUVASTATIN. [Interacting]
     Active Substance: ROSUVASTATIN
     Dosage: ()
  23. ROSUVASTATIN. [Interacting]
     Active Substance: ROSUVASTATIN
     Dosage: UNK ()
  24. TAMSULOSIN [Interacting]
     Active Substance: TAMSULOSIN
     Dosage: UNK ()
     Route: 065
  25. LISIHEXAL COMP [Interacting]
     Active Substance: HYDROCHLOROTHIAZIDE\LISINOPRIL
     Dosage: UNK ()
  26. LOSARTAN. [Interacting]
     Active Substance: LOSARTAN
     Dosage: ()
  27. ROSUVASTATIN. [Interacting]
     Active Substance: ROSUVASTATIN
     Indication: PRODUCT USED FOR UNKNOWN INDICATION
     Dosage: ()
  28. ATENOLOL. [Interacting]
     Active Substance: ATENOLOL
     Indication: PRODUCT USED FOR UNKNOWN INDICATION
     Dosage: ()
  29. CARBAMAZEPINE. [Interacting]
     Active Substance: CARBAMAZEPINE
     Indication: PRODUCT USED FOR UNKNOWN INDICATION
     Dosage: ()
  30. INSULIN [Interacting]
     Active Substance: INSULIN NOS
     Dosage: ()
  31. INFLUENZA VACCINE [Interacting]
     Active Substance: INFLUENZA VIRUS VACCINE
     Indication: IMMUNISATION
     Dosage: UNK ()

REACTIONS (12)
  - Paraplegia [Unknown]
  - Drug interaction [Unknown]
  - Guillain-Barre syndrome [Unknown]
  - Coordination abnormal [Unknown]
  - Respiratory failure [Unknown]
  - Mobility decreased [Unknown]
  - Plasmapheresis [Unknown]
  - Diabetic neuropathy [Unknown]
  - Potentiating drug interaction [Unknown]
  - Toxicity to various agents [Unknown]
  - Paraesthesia [Unknown]
  - Loss of personal independence in daily activities [Unknown]
